FAERS Safety Report 12953830 (Version 1)
Quarter: 2016Q4

REPORT INFORMATION
  Report Type: Spontaneous
  Country: US (occurrence: US)
  Receive Date: 20161118
  Receipt Date: 20161118
  Transmission Date: 20170207
  Serious: No
  Sender: FDA-Public Use
  Company Number: US-009507513-1611USA006552

PATIENT

DRUGS (1)
  1. BRIDION [Suspect]
     Active Substance: SUGAMMADEX

REACTIONS (1)
  - Hypotension [Unknown]
